FAERS Safety Report 7649473-1 (Version None)
Quarter: 2011Q3

REPORT INFORMATION
  Report Type: 
  Country: None (occurrence: None)
  Receive Date: 20110802
  Receipt Date: 20110720
  Transmission Date: 20111222
  Serious: Yes (Hospitalization, Other)
  Sender: FDA-Public Use
  Company Number: US-BAYER-201027081NA

PATIENT
  Age: 25 Year
  Sex: Female
  Weight: 61.224 kg

DRUGS (22)
  1. ADIPEX [Concomitant]
  2. IBUPROFEN [Concomitant]
  3. SINGULAIR [Concomitant]
     Dosage: UNK
     Dates: start: 20030101
  4. ADVAIR DISKUS 100/50 [Concomitant]
     Dosage: UNK
     Dates: start: 20030101
  5. ZOFRAN [Concomitant]
     Dosage: 4 MG, UNK
     Dates: start: 20050605
  6. PHENTERMINE [Concomitant]
     Dosage: 37.5 MG, UNK
     Dates: start: 20070606
  7. YAZ [Suspect]
     Indication: CONTRACEPTION
     Dosage: UNK UNK, QD
  8. EFFEXOR [Concomitant]
  9. MULTIVITAMIN WITH MINERALS [Concomitant]
  10. YAZ [Suspect]
     Indication: PREMENSTRUAL SYNDROME
  11. COMBIVENT [Concomitant]
     Dosage: UNK
     Dates: start: 20030101
  12. LYRICA [Concomitant]
     Dosage: 150 MG, UNK
  13. ZOLOFT [Concomitant]
     Dosage: 50 MG, UNK
  14. YASMIN [Suspect]
     Indication: CONTRACEPTION
     Dosage: UNK UNK, QD
     Route: 048
     Dates: start: 20030101, end: 20080101
  15. THYROID TAB [Concomitant]
  16. ULTRAM [Concomitant]
  17. KETOPROFEN [Concomitant]
     Dosage: 75 MG, UNK
     Dates: start: 20061107
  18. NEXIUM [Concomitant]
     Dosage: 40 MG, UNK
     Dates: start: 20050608
  19. FAMVIR [Concomitant]
     Dosage: 500 MG, UNK
     Dates: start: 20061129
  20. ESTAZOLAM [Concomitant]
     Dosage: 2 MG, UNK
  21. YASMIN [Suspect]
     Indication: PREMENSTRUAL SYNDROME
  22. XANAX [Concomitant]
     Indication: ANXIETY

REACTIONS (9)
  - ABDOMINAL PAIN [None]
  - NAUSEA [None]
  - LIVER INJURY [None]
  - VOMITING [None]
  - MUSCLE INJURY [None]
  - CHOLECYSTITIS ACUTE [None]
  - GALLBLADDER INJURY [None]
  - CHOLELITHIASIS [None]
  - CHOLECYSTITIS CHRONIC [None]
